FAERS Safety Report 5894652-7 (Version None)
Quarter: 2008Q3

REPORT INFORMATION
  Report Type: 
  Country: None (occurrence: None)
  Receive Date: 20080924
  Receipt Date: 20080917
  Transmission Date: 20090109
  Serious: Yes (Hospitalization)
  Sender: FDA-Public Use
  Company Number: US-ASTRAZENECA-2008UW19392

PATIENT
  Age: 52 Year
  Sex: Female
  Weight: 75.5 kg

DRUGS (13)
  1. SEROQUEL [Suspect]
     Indication: INSOMNIA
     Route: 048
     Dates: start: 20000101
  2. SEROQUEL [Interacting]
     Indication: BIPOLAR DISORDER
     Route: 048
     Dates: start: 20000101
  3. NORVASC [Interacting]
  4. KLONOPIN [Concomitant]
  5. VERAPAMIL [Concomitant]
  6. AMLODIPINE [Concomitant]
  7. ADVAIR DISKUS 100/50 [Concomitant]
  8. OXYGEN [Concomitant]
  9. LASIX [Concomitant]
  10. POTASSIUM CHLORIDE [Concomitant]
  11. PHENERGAN HCL [Concomitant]
  12. LOVASTATIN [Concomitant]
  13. NITROGLYCERIN [Concomitant]
     Indication: CHEST PAIN

REACTIONS (3)
  - CARDIAC FAILURE CONGESTIVE [None]
  - CARDIOMEGALY [None]
  - DRUG INTERACTION [None]
